FAERS Safety Report 13547042 (Version 2)
Quarter: 2017Q2

REPORT INFORMATION
  Report Type: Spontaneous
  Country: GR (occurrence: GR)
  Receive Date: 20170515
  Receipt Date: 20170601
  Transmission Date: 20170830
  Serious: Yes (Other)
  Sender: FDA-Public Use
  Company Number: GR-009507513-1705GRC005368

PATIENT
  Age: 80 Year
  Sex: Female

DRUGS (2)
  1. AERIUS [Suspect]
     Active Substance: DESLORATADINE
     Indication: ANAPHYLACTIC SHOCK
     Dosage: UNK
     Route: 048
     Dates: start: 2017, end: 2017
  2. EZETROL [Suspect]
     Active Substance: EZETIMIBE
     Indication: BLOOD CHOLESTEROL ABNORMAL
     Dosage: UNK, ONCE EVERY NIGHT
     Route: 048
     Dates: start: 20170329, end: 2017

REACTIONS (8)
  - Product use in unapproved indication [Unknown]
  - Hypersensitivity [Recovered/Resolved]
  - Hypersensitivity [Recovered/Resolved]
  - Acne [Recovered/Resolved]
  - Anaphylactic shock [Recovered/Resolved]
  - Drug ineffective for unapproved indication [Unknown]
  - Anaphylactic shock [Recovered/Resolved]
  - Blood pressure increased [Recovered/Resolved]

NARRATIVE: CASE EVENT DATE: 2017
